FAERS Safety Report 5568050-X (Version None)
Quarter: 2007Q4

REPORT INFORMATION
  Report Type: 
  Country: None (occurrence: None)
  Receive Date: 20071220
  Receipt Date: 20071214
  Transmission Date: 20080405
  Serious: Yes (Hospitalization, Other)
  Sender: FDA-Public Use
  Company Number: US-KINGPHARMUSA00001-K200701620

PATIENT

DRUGS (5)
  1. ALTACE [Suspect]
     Indication: HYPERTENSION
     Dosage: UNK, QD
     Route: 048
     Dates: start: 20070615, end: 20070914
  2. PROPOFAN /00765201/ [Suspect]
     Indication: ARTHRALGIA
     Dosage: UNK, QD
     Route: 048
     Dates: start: 20070816, end: 20070822
  3. FELDENE [Suspect]
     Indication: ARTHRALGIA
     Dosage: UNK, QD
     Route: 030
     Dates: start: 20070816, end: 20070822
  4. MYOLASTAN [Suspect]
     Indication: ARTHRALGIA
     Dosage: UNK, QD
     Dates: start: 20070816, end: 20070826
  5. INIPOMP /01263201/ [Suspect]
     Indication: PROPHYLAXIS
     Dosage: UNK, QD
     Route: 048
     Dates: start: 20070816, end: 20070826

REACTIONS (3)
  - LEUKOCYTOCLASTIC VASCULITIS [None]
  - PURPURA [None]
  - RECTAL HAEMORRHAGE [None]
